FAERS Safety Report 8346844-5 (Version None)
Quarter: 2012Q2

REPORT INFORMATION
  Report Type: 
  Country: None (occurrence: None)
  Receive Date: 20120509
  Receipt Date: 20120502
  Transmission Date: 20120825
  Serious: Yes (Other)
  Sender: FDA-Public Use
  Company Number: BR-SANOFI-AVENTIS-2012SA031228

PATIENT
  Age: 73 Year
  Sex: Female
  Weight: 90 kg

DRUGS (6)
  1. METFORMIN HCL [Concomitant]
     Indication: TYPE 2 DIABETES MELLITUS
     Dosage: STRENGTH:500 MG
     Route: 048
  2. PIOGLITAZONE HYDROCHLORIDE [Concomitant]
     Indication: TYPE 2 DIABETES MELLITUS
     Dosage: STRENGTH: 45 MG
     Route: 048
  3. SOLOSTAR [Suspect]
     Indication: DEVICE THERAPY
  4. LANTUS [Suspect]
     Route: 058
     Dates: start: 20060101
  5. LANTUS [Suspect]
     Route: 058
  6. SOLOSTAR [Suspect]
     Dates: start: 20060101

REACTIONS (5)
  - PHLEBITIS [None]
  - BLOOD GLUCOSE INCREASED [None]
  - DRY THROAT [None]
  - VISION BLURRED [None]
  - OSTEOPOROSIS [None]
